FAERS Safety Report 5120159-0 (Version None)
Quarter: 2006Q4

REPORT INFORMATION
  Report Type: 
  Country: None (occurrence: None)
  Receive Date: 20061002
  Receipt Date: 20061002
  Transmission Date: 20070319
  Serious: Yes (Hospitalization)
  Sender: FDA-Public Use
  Company Number: None

PATIENT
  Age: 6 Year
  Sex: Female
  Weight: 24.9478 kg

DRUGS (3)
  1. CEFACLOR [Suspect]
     Indication: PHARYNGITIS STREPTOCOCCAL
     Dosage: 250 MG T.I.D. PO
     Route: 048
     Dates: start: 20051019, end: 20051019
  2. CEFACLOR [Suspect]
     Indication: PHARYNGOLARYNGEAL PAIN
     Dosage: 250 MG T.I.D. PO
     Route: 048
     Dates: start: 20051019, end: 20051019
  3. CEFACLOR [Suspect]
     Indication: UPPER RESPIRATORY TRACT INFECTION
     Dosage: 250 MG T.I.D. PO
     Route: 048
     Dates: start: 20051019, end: 20051019

REACTIONS (5)
  - CRYING [None]
  - DRUG PRESCRIBING ERROR [None]
  - HEADACHE [None]
  - SCREAMING [None]
  - URTICARIA [None]
